FAERS Safety Report 7657667-4 (Version None)
Quarter: 2011Q3

REPORT INFORMATION
  Report Type: 
  Country: None (occurrence: None)
  Receive Date: 20110804
  Receipt Date: 20110802
  Transmission Date: 20111222
  Serious: Yes (Other)
  Sender: FDA-Public Use
  Company Number: AU-MERCK-1108USA00377

PATIENT

DRUGS (3)
  1. ESCITALOPRAM [Concomitant]
     Route: 065
  2. ZOCOR [Suspect]
     Route: 048
     Dates: end: 20110124
  3. NEXIUM [Concomitant]
     Route: 065

REACTIONS (2)
  - LIVER INJURY [None]
  - RHABDOMYOLYSIS [None]
